FAERS Safety Report 18397044 (Version 1)
Quarter: 2020Q4

REPORT INFORMATION
  Report Type: Spontaneous
  Country: HU (occurrence: HU)
  Receive Date: 20201019
  Receipt Date: 20201019
  Transmission Date: 20210114
  Serious: Yes (Disabling, Other)
  Sender: FDA-Public Use
  Company Number: HU-SA-2020SA290279

PATIENT

DRUGS (25)
  1. SUFENTANIL [Suspect]
     Active Substance: SUFENTANIL
     Dosage: 40 UG, TOTAL
     Dates: start: 20200117, end: 20200117
  2. METRONIDAZOLE. [Suspect]
     Active Substance: METRONIDAZOLE
     Dosage: UNK
     Dates: start: 20200117, end: 20200127
  3. CLEXANE [Suspect]
     Active Substance: ENOXAPARIN SODIUM
     Dosage: 0.4 ML
     Dates: start: 202001, end: 20200129
  4. PARACETAMOL [Suspect]
     Active Substance: ACETAMINOPHEN
     Indication: PREMEDICATION
     Dosage: 1 G, TOTAL
     Dates: start: 20200117, end: 20200117
  5. BUPIVACAINE. [Suspect]
     Active Substance: BUPIVACAINE
     Indication: EPIDURAL ANAESTHESIA
     Dosage: UNK
     Dates: start: 20200117, end: 20200117
  6. ALGOPYRIN [METAMIZOLE SODIUM] [Suspect]
     Active Substance: METAMIZOLE SODIUM
     Dosage: UNK
     Dates: start: 20200120, end: 20200120
  7. FENTANYL. [Suspect]
     Active Substance: FENTANYL
     Dosage: 2 ML
     Dates: start: 20200119, end: 20200119
  8. CLAFORAN [Suspect]
     Active Substance: CEFOTAXIME SODIUM
     Dosage: 1 G, Q12H
     Dates: start: 20200117, end: 20200121
  9. CONTROLOC [Suspect]
     Active Substance: PANTOPRAZOLE SODIUM
     Dosage: 1 DF, BID
     Dates: start: 20200128, end: 20200129
  10. NO-SPA [Suspect]
     Active Substance: DROTAVERINE HYDROCHLORIDE
     Dosage: UNK
     Dates: start: 20200120, end: 20200120
  11. TRAMADOL HYDROCHLORIDE. [Suspect]
     Active Substance: TRAMADOL HYDROCHLORIDE
     Dosage: UNK
     Dates: start: 20200120, end: 20200120
  12. BRIDION [Suspect]
     Active Substance: SUGAMMADEX
     Dosage: 50 MG, TOTAL
     Dates: start: 20200117, end: 20200117
  13. FENTANYL. [Suspect]
     Active Substance: FENTANYL
     Dosage: 2 ML
     Dates: start: 20200117, end: 20200117
  14. METRONIDAZOLE. [Suspect]
     Active Substance: METRONIDAZOLE
     Dosage: 500 MG, TOTAL
     Dates: start: 20200117, end: 20200117
  15. SUPRAX [Suspect]
     Active Substance: CEFIXIME
     Dosage: UNK
     Dates: start: 20200122, end: 20200127
  16. ALGOPYRIN [METAMIZOLE SODIUM] [Suspect]
     Active Substance: METAMIZOLE SODIUM
     Dosage: 2 G, TOTAL
     Dates: start: 20200117, end: 20200117
  17. LIDOCAINE. [Suspect]
     Active Substance: LIDOCAINE
     Indication: EPIDURAL ANAESTHESIA
     Dosage: UNK
     Dates: start: 20200117, end: 20200117
  18. PROPOFOL. [Suspect]
     Active Substance: PROPOFOL
     Dosage: 250 MG, TOTAL
     Dates: start: 20200117, end: 20200117
  19. EPINEPHRINE. [Suspect]
     Active Substance: EPINEPHRINE
     Dosage: UNK
     Dates: start: 20200117, end: 20200117
  20. CONTROLOC [Suspect]
     Active Substance: PANTOPRAZOLE SODIUM
     Dosage: 1 DF, BID
     Dates: start: 20200117, end: 20200129
  21. FENTANYL. [Suspect]
     Active Substance: FENTANYL
     Indication: EPIDURAL ANAESTHESIA
     Dosage: UNK
     Dates: start: 20200117, end: 20200117
  22. ONDANSETRON [Suspect]
     Active Substance: ONDANSETRON
     Dosage: 4 MG, TOTAL
     Dates: start: 20200117, end: 20200117
  23. CLAFORAN [Suspect]
     Active Substance: CEFOTAXIME SODIUM
     Dosage: 1 G, TOTAL
     Dates: start: 20200117, end: 20200117
  24. ROCURONIUM BROMIDE. [Suspect]
     Active Substance: ROCURONIUM BROMIDE
     Dosage: UNK
     Dates: start: 20200117, end: 20200117
  25. ALPRAZOLAM. [Suspect]
     Active Substance: ALPRAZOLAM
     Dosage: 0.25 MG, TOTAL
     Dates: start: 20200117, end: 20200117

REACTIONS (1)
  - Deafness neurosensory [Not Recovered/Not Resolved]

NARRATIVE: CASE EVENT DATE: 20200124
